FAERS Safety Report 4677675-5 (Version None)
Quarter: 2005Q2

REPORT INFORMATION
  Report Type: 
  Country: None (occurrence: None)
  Receive Date: 20050531
  Receipt Date: 20050426
  Transmission Date: 20051028
  Serious: Yes (Life-Threatening, Hospitalization)
  Sender: FDA-Public Use
  Company Number: JP-MERCK-0504USA05008

PATIENT
  Age: 56 Year
  Sex: Female

DRUGS (6)
  1. SINGULAIR [Suspect]
     Route: 048
     Dates: start: 20050128, end: 20050306
  2. THYRADIN-S [Concomitant]
     Indication: HYPOTHYROIDISM
     Route: 048
  3. KYORIN AP2 [Concomitant]
     Route: 048
     Dates: start: 20050216, end: 20050306
  4. MONOCHROTON [Concomitant]
     Route: 048
     Dates: start: 20050216, end: 20050306
  5. SEREVENT [Concomitant]
     Indication: ASTHMA
     Route: 055
  6. PULMICORT [Concomitant]
     Indication: ASTHMA
     Route: 055

REACTIONS (2)
  - ALLERGIC GRANULOMATOUS ANGIITIS [None]
  - HAEMOPTYSIS [None]
